FAERS Safety Report 7765893-9 (Version None)
Quarter: 2011Q3

REPORT INFORMATION
  Report Type: 
  Country: None (occurrence: None)
  Receive Date: 20110921
  Receipt Date: 20110520
  Transmission Date: 20111222
  Serious: No
  Sender: FDA-Public Use
  Company Number: US-BAYER-2011-044685

PATIENT
  Age: 56 Year
  Sex: Male
  Weight: 100 kg

DRUGS (2)
  1. ALEVE (CAPLET) [Suspect]
     Indication: BACK PAIN
     Dosage: 2 U, QD
     Route: 048
     Dates: start: 20110519
  2. UNKNOWN [Concomitant]
     Dosage: UNK UNK, QD
     Route: 048

REACTIONS (1)
  - THERAPEUTIC RESPONSE DECREASED [None]
